FAERS Safety Report 15460798 (Version 1)
Quarter: 2018Q4

REPORT INFORMATION
  Report Type: Spontaneous
  Country: GB (occurrence: GB)
  Receive Date: 20181003
  Receipt Date: 20181003
  Transmission Date: 20190204
  Serious: Yes (Life-Threatening)
  Sender: FDA-Public Use
  Company Number: GB-TEVA-2018-GB-960238

PATIENT
  Age: 31 Year
  Sex: Male

DRUGS (6)
  1. NOREPINEPHRINE. [Concomitant]
     Active Substance: NOREPINEPHRINE
     Indication: BLOOD PRESSURE MEASUREMENT
     Dosage: 2.5-16ML/HR
     Route: 042
     Dates: start: 20180820
  2. PANTOPRAZOLE [Concomitant]
     Active Substance: PANTOPRAZOLE
     Indication: PROPHYLAXIS
     Route: 042
     Dates: start: 20180820
  3. DALTEPARIN [Concomitant]
     Active Substance: DALTEPARIN
     Indication: THROMBOSIS PROPHYLAXIS
     Dosage: 5000 IU (INTERNATIONAL UNIT) DAILY;
     Route: 058
     Dates: start: 20180814
  4. CLONIDINE. [Suspect]
     Active Substance: CLONIDINE
     Indication: SEDATION
     Dosage: BETWEEN 2-7ML/HR
     Route: 042
     Dates: start: 20180823, end: 20180826
  5. PROPOFOL. [Concomitant]
     Active Substance: PROPOFOL
     Indication: SEDATION
     Dosage: 0-8ML/HR
     Route: 042
     Dates: start: 20180820
  6. ALFENTANIL. [Concomitant]
     Active Substance: ALFENTANIL
     Indication: ANALGESIC THERAPY
     Dosage: 3-9ML/HR
     Route: 042
     Dates: start: 20180820

REACTIONS (3)
  - Hypotension [Recovered/Resolved]
  - Cardiac arrest [Recovered/Resolved]
  - Bradycardia [Recovered/Resolved]

NARRATIVE: CASE EVENT DATE: 20180824
